FAERS Safety Report 15580618 (Version 3)
Quarter: 2018Q4

REPORT INFORMATION
  Report Type: Report from Study
  Country: US (occurrence: US)
  Receive Date: 20181102
  Receipt Date: 20181211
  Transmission Date: 20190205
  Serious: Yes (Hospitalization, Other)
  Sender: FDA-Public Use
  Company Number: US-EISAI MEDICAL RESEARCH-EC-2018-046470

PATIENT
  Age: 80 Year
  Sex: Female
  Weight: 49.8 kg

DRUGS (5)
  1. CEFADROXIL. [Concomitant]
     Active Substance: CEFADROXIL
  2. LIDOCAINE. [Concomitant]
     Active Substance: LIDOCAINE
  3. LENVIMA [Suspect]
     Active Substance: LENVATINIB
     Indication: THYROID CANCER
     Route: 048
     Dates: start: 20181003, end: 201810
  4. COREG [Concomitant]
     Active Substance: CARVEDILOL
  5. SYNTHROID [Concomitant]
     Active Substance: LEVOTHYROXINE SODIUM

REACTIONS (11)
  - Stomatitis [Unknown]
  - Brain oedema [Not Recovered/Not Resolved]
  - Headache [Unknown]
  - Abdominal pain upper [Unknown]
  - Perforated ulcer [Unknown]
  - Decreased appetite [Unknown]
  - Abdominal discomfort [Not Recovered/Not Resolved]
  - Radiculopathy [Recovering/Resolving]
  - Blood pressure increased [Not Recovered/Not Resolved]
  - Metastases to central nervous system [Not Recovered/Not Resolved]
  - Blindness [Not Recovered/Not Resolved]

NARRATIVE: CASE EVENT DATE: 201810
